FAERS Safety Report 21812020 (Version 1)
Quarter: 2023Q1

REPORT INFORMATION
  Report Type: Spontaneous
  Country: US (occurrence: None)
  Receive Date: 20230103
  Receipt Date: 20230103
  Transmission Date: 20230418
  Serious: Yes (Hospitalization)
  Sender: FDA-Public Use
  Company Number: None

PATIENT
  Sex: Female

DRUGS (2)
  1. BETHKIS [Suspect]
     Active Substance: TOBRAMYCIN
     Indication: Cystic fibrosis
     Dosage: 300MG/4ML  INHLATION??INHALE 4ML VIA NEBULIZER TWICE DAILY? ?
     Route: 055
     Dates: start: 20160315
  2. GLYCOPYRROL TAB [Concomitant]

REACTIONS (1)
  - Dyspnoea [None]
